FAERS Safety Report 20196809 (Version 2)
Quarter: 2022Q1

REPORT INFORMATION
  Report Type: Spontaneous
  Country: CA (occurrence: CA)
  Receive Date: 20211217
  Receipt Date: 20220331
  Transmission Date: 20220423
  Serious: Yes (Death, Other)
  Sender: FDA-Public Use
  Company Number: CA-SA-SAC20211213000358

PATIENT

DRUGS (46)
  1. HYDROXYCHLOROQUINE SULFATE [Suspect]
     Active Substance: HYDROXYCHLOROQUINE SULFATE
     Dosage: 400 MG
     Route: 064
  2. DESOXIMETASONE [Suspect]
     Active Substance: DESOXIMETASONE
     Dosage: UNKN
     Route: 064
  3. CORTISONE ACETATE [Suspect]
     Active Substance: CORTISONE ACETATE
     Indication: Product used for unknown indication
     Dosage: 25 MG
     Route: 064
  4. DICLOFENAC SODIUM [Suspect]
     Active Substance: DICLOFENAC SODIUM
     Route: 064
  5. ALENDRONATE SODIUM [Suspect]
     Active Substance: ALENDRONATE SODIUM
     Route: 064
  6. KEVZARA [Suspect]
     Active Substance: SARILUMAB
     Route: 064
  7. CETIRIZINE HYDROCHLORIDE [Suspect]
     Active Substance: CETIRIZINE HYDROCHLORIDE
     Dosage: 10 MG
     Route: 064
  8. ARAVA [Suspect]
     Active Substance: LEFLUNOMIDE
     Dosage: 20 MG
     Route: 064
  9. DIPHENHYDRAMINE HYDROCHLORIDE [Suspect]
     Active Substance: DIPHENHYDRAMINE HYDROCHLORIDE
     Route: 064
  10. LEFLUNOMIDE [Suspect]
     Active Substance: LEFLUNOMIDE
     Route: 058
  11. METHOTREXATE [Suspect]
     Active Substance: METHOTREXATE
     Dosage: 25 MG
     Route: 064
  12. METHOTREXATE [Suspect]
     Active Substance: METHOTREXATE
     Dosage: 20 MG
     Route: 064
  13. METHOTREXATE [Suspect]
     Active Substance: METHOTREXATE
     Dosage: 20 MG
     Route: 064
  14. FOLIC ACID [Suspect]
     Active Substance: FOLIC ACID
     Indication: Rheumatoid arthritis
     Route: 064
  15. SULFASALAZINE [Suspect]
     Active Substance: SULFASALAZINE
     Route: 064
  16. SULFASALAZINE [Suspect]
     Active Substance: SULFASALAZINE
     Route: 064
  17. PREDNISONE [Suspect]
     Active Substance: PREDNISONE
     Dosage: 25 MG
     Route: 064
  18. PSEUDOEPHEDRINE HYDROCHLORIDE [Suspect]
     Active Substance: PSEUDOEPHEDRINE HYDROCHLORIDE
     Route: 064
  19. ACETAMINOPHEN [Suspect]
     Active Substance: ACETAMINOPHEN
     Route: 064
  20. ACTEMRA [Suspect]
     Active Substance: TOCILIZUMAB
     Route: 064
  21. ADALIMUMAB [Suspect]
     Active Substance: ADALIMUMAB
     Route: 064
  22. PREDNISONE [Suspect]
     Active Substance: PREDNISONE
     Route: 064
  23. CIMZIA [Suspect]
     Active Substance: CERTOLIZUMAB PEGOL
     Route: 064
  24. ENBREL [Suspect]
     Active Substance: ETANERCEPT
     Route: 064
  25. ERELZI [Suspect]
     Active Substance: ETANERCEPT-SZZS
     Route: 064
  26. FOSAMAX [Suspect]
     Active Substance: ALENDRONATE SODIUM
     Route: 064
  27. GOLIMUMAB [Suspect]
     Active Substance: GOLIMUMAB
     Route: 064
  28. HUMIRA [Suspect]
     Active Substance: ADALIMUMAB
     Route: 064
  29. HUMIRA [Suspect]
     Active Substance: ADALIMUMAB
     Route: 064
  30. ORENCIA [Suspect]
     Active Substance: ABATACEPT
     Route: 064
  31. PHTHALYLSULFATHIAZOLE [Suspect]
     Active Substance: PHTHALYLSULFATHIAZOLE
     Route: 064
  32. CETIRIZINE HYDROCHLORIDE\PSEUDOEPHEDRINE HYDROCHLORIDE [Suspect]
     Active Substance: CETIRIZINE HYDROCHLORIDE\PSEUDOEPHEDRINE HYDROCHLORIDE
     Route: 064
  33. REMICADE [Suspect]
     Active Substance: INFLIXIMAB
     Route: 064
  34. REMICADE [Suspect]
     Active Substance: INFLIXIMAB
     Dosage: UNK
     Route: 042
  35. RITUXIMAB [Suspect]
     Active Substance: RITUXIMAB
     Route: 064
  36. SIMPONI [Suspect]
     Active Substance: GOLIMUMAB
     Route: 064
  37. SOLU-MEDROL [Suspect]
     Active Substance: METHYLPREDNISOLONE SODIUM SUCCINATE
     Route: 064
  38. STELARA [Suspect]
     Active Substance: USTEKINUMAB
     Route: 064
  39. TOCILIZUMAB [Suspect]
     Active Substance: TOCILIZUMAB
     Route: 064
  40. XELJANZ [Suspect]
     Active Substance: TOFACITINIB CITRATE
     Route: 064
  41. CAFFEINE CITRATE [Concomitant]
     Active Substance: CAFFEINE CITRATE
     Route: 064
  42. CODEINE [Concomitant]
     Active Substance: CODEINE
     Route: 064
  43. IBUPROFEN [Concomitant]
     Active Substance: IBUPROFEN
     Route: 064
  44. LISINOPRIL [Concomitant]
     Active Substance: LISINOPRIL
     Route: 064
  45. SULFASALAZINE [Concomitant]
     Active Substance: SULFASALAZINE
     Route: 064
  46. VITAMIN D3 [Concomitant]
     Active Substance: CHOLECALCIFEROL
     Route: 064

REACTIONS (2)
  - Death neonatal [Fatal]
  - Maternal exposure during pregnancy [Fatal]
